FAERS Safety Report 5273956-5 (Version None)
Quarter: 2007Q1

REPORT INFORMATION
  Report Type: 
  Country: None (occurrence: None)
  Receive Date: 20070323
  Receipt Date: 20070312
  Transmission Date: 20070707
  Serious: Yes (Other)
  Sender: FDA-Public Use
  Company Number: US-ROCHE-487574

PATIENT
  Age: 27 Year
  Sex: Female

DRUGS (2)
  1. ACCUTANE [Suspect]
     Indication: ACNE
     Dosage: COURSE 1.
     Route: 048
     Dates: start: 20061201, end: 20070305
  2. ACCUTANE [Suspect]
     Dosage: COURSE 2.
     Route: 048
     Dates: start: 20070308

REACTIONS (1)
  - HAEMATOCHEZIA [None]
